FAERS Safety Report 15203529 (Version 1)
Quarter: 2018Q3

REPORT INFORMATION
  Report Type: Report from Study
  Country: ES (occurrence: ES)
  Receive Date: 20180726
  Receipt Date: 20180726
  Transmission Date: 20181010
  Serious: Yes (Hospitalization)
  Sender: FDA-Public Use
  Company Number: ES-PFIZER INC-2018298503

PATIENT
  Age: 71 Year
  Sex: Male
  Weight: 66 kg

DRUGS (12)
  1. IRINOTECAN HCL [Suspect]
     Active Substance: IRINOTECAN HYDROCHLORIDE
     Indication: ADENOCARCINOMA OF COLON
     Dosage: 180 MG/M2, QOW
     Route: 042
     Dates: start: 20180525, end: 20180525
  2. 5?FU [Suspect]
     Active Substance: FLUOROURACIL
     Dosage: 2400 MG/M2 CYCLIC (EVERY 2 WEEKS)
     Route: 041
     Dates: start: 20180525, end: 20180525
  3. OMEPRAZOLE. [Concomitant]
     Active Substance: OMEPRAZOLE
     Indication: GASTRIC ULCER
     Dosage: 20 MG, QD
  4. FENTANYL. [Concomitant]
     Active Substance: FENTANYL
     Indication: PAIN
     Dosage: 200 UNK, UNK
     Dates: start: 20180607
  5. 5?FU [Suspect]
     Active Substance: FLUOROURACIL
     Indication: ADENOCARCINOMA OF COLON
     Dosage: 400 MG/M2, QOW
     Route: 040
     Dates: start: 20180525, end: 20180525
  6. METOCLOPRAMIDE. [Concomitant]
     Active Substance: METOCLOPRAMIDE
     Indication: ANTIEMETIC SUPPORTIVE CARE
     Dosage: 10 MG, Q8H
     Route: 048
  7. METAMIZOLE [Concomitant]
     Active Substance: METAMIZOLE
     Indication: PAIN
     Dosage: 75 MG, TID
     Route: 048
  8. FENTANYL. [Concomitant]
     Active Substance: FENTANYL
     Dosage: 100 UG, QD
     Route: 045
  9. CALCIUM FOLINATE [Suspect]
     Active Substance: LEUCOVORIN CALCIUM
     Indication: ADENOCARCINOMA OF COLON
     Dosage: 400 MG/M2, QOW
     Route: 042
     Dates: start: 20180525, end: 20180525
  10. AFLIBERCEPT [Suspect]
     Active Substance: AFLIBERCEPT
     Indication: ADENOCARCINOMA OF COLON
     Dosage: 4 MG/KG, QOW
     Route: 042
     Dates: start: 20180525, end: 20180525
  11. PARACETAMOL [Concomitant]
     Active Substance: ACETAMINOPHEN
     Indication: PAIN
     Dosage: 1 G, Q8H
     Route: 048
  12. FENTANYL. [Concomitant]
     Active Substance: FENTANYL
     Dosage: 75 UG, Q3D
     Route: 061

REACTIONS (3)
  - Diarrhoea [Recovered/Resolved]
  - Abdominal pain [Recovered/Resolved]
  - Pyrexia [Recovered/Resolved]

NARRATIVE: CASE EVENT DATE: 20180607
